FAERS Safety Report 22320930 (Version 1)
Quarter: 2023Q2

REPORT INFORMATION
  Report Type: Report from Study
  Country: IT (occurrence: IT)
  Receive Date: 20230515
  Receipt Date: 20230515
  Transmission Date: 20230721
  Serious: Yes (Other)
  Sender: FDA-Public Use
  Company Number: IT-PFM-2023-02752

PATIENT
  Sex: Female
  Weight: 66 kg

DRUGS (4)
  1. ENCORAFENIB [Suspect]
     Active Substance: ENCORAFENIB
     Indication: Malignant melanoma stage II
     Dosage: QD (1/DAY)
     Route: 048
     Dates: start: 20221025
  2. ENCORAFENIB [Suspect]
     Active Substance: ENCORAFENIB
     Indication: BRAF V600E mutation positive
     Dosage: QD (1/DAY)
     Route: 048
     Dates: end: 20230324
  3. BINIMETINIB [Suspect]
     Active Substance: BINIMETINIB
     Indication: Malignant melanoma stage II
     Dosage: QD (1/DAY)
     Route: 048
     Dates: start: 20221025
  4. BINIMETINIB [Suspect]
     Active Substance: BINIMETINIB
     Indication: BRAF V600E mutation positive
     Dosage: QD (1/DAY)
     Route: 048
     Dates: start: 20221025, end: 20230323

REACTIONS (2)
  - Second primary malignancy [Recovered/Resolved]
  - Malignant melanoma [Recovered/Resolved]

NARRATIVE: CASE EVENT DATE: 20230404
